FAERS Safety Report 9537285 (Version 40)
Quarter: 2017Q1

REPORT INFORMATION
  Report Type: Report from Study
  Country: CA (occurrence: CA)
  Receive Date: 20130919
  Receipt Date: 20170323
  Transmission Date: 20170429
  Serious: Yes (Hospitalization, Other)
  Sender: FDA-Public Use
  Company Number: CA-ROCHE-1238559

PATIENT
  Age: 59 Year
  Sex: Female
  Weight: 78.5 kg

DRUGS (19)
  1. ACTEMRA [Suspect]
     Active Substance: TOCILIZUMAB
     Indication: RHEUMATOID ARTHRITIS
     Dosage: LAST DOSE IN CLINICAL TRIAL: DEC/2012.
     Route: 042
  2. SYNTHROID [Concomitant]
     Active Substance: LEVOTHYROXINE SODIUM
  3. ACTEMRA [Suspect]
     Active Substance: TOCILIZUMAB
     Route: 042
     Dates: start: 20130717
  4. CORTISONE [Suspect]
     Active Substance: CORTISONE\HYDROCORTISONE
     Indication: PRODUCT USED FOR UNKNOWN INDICATION
     Route: 065
  5. LASIX [Concomitant]
     Active Substance: FUROSEMIDE
  6. FLU VACCINE [Suspect]
     Active Substance: INFLUENZA VIRUS VACCINE
     Indication: PRODUCT USED FOR UNKNOWN INDICATION
     Dosage: UNKNOWN DOSE AND FREQUENCY
     Route: 065
     Dates: start: 20141117, end: 20141117
  7. ACTEMRA [Suspect]
     Active Substance: TOCILIZUMAB
     Dosage: THERAPY HOLD.
     Route: 042
     Dates: start: 20150615
  8. PNEUMONIA VACCINE [Suspect]
     Active Substance: PNEUMOCOCCAL VACCINE POLYVALENT
     Indication: PRODUCT USED FOR UNKNOWN INDICATION
     Dosage: UNKNOWN DOSE AND FREQUENCY
     Route: 065
  9. LIPIDIL [Concomitant]
     Active Substance: FENOFIBRATE
  10. ACTEMRA [Suspect]
     Active Substance: TOCILIZUMAB
     Route: 042
     Dates: start: 20130617
  11. ACTEMRA [Suspect]
     Active Substance: TOCILIZUMAB
     Route: 042
     Dates: start: 20140929
  12. METHOTREXATE. [Concomitant]
     Active Substance: METHOTREXATE
  13. PLAQUENIL [Concomitant]
     Active Substance: HYDROXYCHLOROQUINE SULFATE
  14. AVAPRO [Concomitant]
     Active Substance: IRBESARTAN
  15. ACTEMRA [Suspect]
     Active Substance: TOCILIZUMAB
     Route: 042
     Dates: start: 20141027
  16. FLU VACCINE [Suspect]
     Active Substance: INFLUENZA VIRUS VACCINE
     Route: 065
     Dates: start: 20151123
  17. AMIODARONE [Concomitant]
     Active Substance: AMIODARONE
  18. XARELTO [Concomitant]
     Active Substance: RIVAROXABAN
  19. ATORVASTATIN [Concomitant]
     Active Substance: ATORVASTATIN

REACTIONS (49)
  - Fatigue [Not Recovered/Not Resolved]
  - Body temperature decreased [Unknown]
  - Viral infection [Recovered/Resolved]
  - Cardiac failure [Recovering/Resolving]
  - Chest discomfort [Not Recovered/Not Resolved]
  - Arthralgia [Recovering/Resolving]
  - Injection site swelling [Unknown]
  - Heart rate irregular [Unknown]
  - Ocular neoplasm [Unknown]
  - Chondropathy [Not Recovered/Not Resolved]
  - Seasonal allergy [Recovering/Resolving]
  - Nausea [Not Recovered/Not Resolved]
  - Arthralgia [Recovered/Resolved]
  - Pain [Unknown]
  - Epigastric discomfort [Unknown]
  - Body temperature decreased [Unknown]
  - Rheumatoid arthritis [Not Recovered/Not Resolved]
  - Phlebitis [Unknown]
  - Chronic sinusitis [Not Recovered/Not Resolved]
  - Back pain [Not Recovered/Not Resolved]
  - Bronchitis [Not Recovered/Not Resolved]
  - Oropharyngeal pain [Not Recovered/Not Resolved]
  - Infusion related reaction [Recovered/Resolved]
  - Skin lesion [Unknown]
  - Sinusitis [Unknown]
  - Abdominal pain [Unknown]
  - Diarrhoea [Not Recovered/Not Resolved]
  - Asthma [Unknown]
  - Cardiac failure [Unknown]
  - Hot flush [Recovered/Resolved]
  - Pain in extremity [Recovered/Resolved]
  - Joint swelling [Recovering/Resolving]
  - Body temperature decreased [Unknown]
  - Nasal congestion [Not Recovered/Not Resolved]
  - Heart rate decreased [Unknown]
  - Tachycardia [Unknown]
  - Dyspnoea exertional [Not Recovered/Not Resolved]
  - Dyspnoea [Not Recovered/Not Resolved]
  - Cardiac disorder [Not Recovered/Not Resolved]
  - Drug ineffective [Unknown]
  - Heart rate increased [Unknown]
  - Dyspnoea [Recovered/Resolved]
  - Blood pressure increased [Unknown]
  - Hypoaesthesia [Not Recovered/Not Resolved]
  - Palpitations [Not Recovered/Not Resolved]
  - Erythema [Recovered/Resolved]
  - Heart rate increased [Recovered/Resolved]
  - Hypercholesterolaemia [Not Recovered/Not Resolved]
  - Orthopnoea [Unknown]

NARRATIVE: CASE EVENT DATE: 201308
